FAERS Safety Report 4479306-6 (Version None)
Quarter: 2004Q4

REPORT INFORMATION
  Report Type: 
  Country: None (occurrence: None)
  Receive Date: 20041015
  Receipt Date: 20041004
  Transmission Date: 20050328
  Serious: Yes (Hospitalization)
  Sender: FDA-Public Use
  Company Number: 2004237293AT

PATIENT

DRUGS (1)
  1. CLINDAMYCIN HCL [Suspect]
     Indication: DENTAL OPERATION
     Dates: start: 20030601

REACTIONS (2)
  - DEPRESSION [None]
  - PANIC ATTACK [None]
